FAERS Safety Report 6509913-8 (Version None)
Quarter: 2009Q4

REPORT INFORMATION
  Report Type: 
  Country: None (occurrence: None)
  Receive Date: 20091222
  Receipt Date: 20091211
  Transmission Date: 20100525
  Serious: Yes (Other)
  Sender: FDA-Public Use
  Company Number: PHHY2009DE55316

PATIENT
  Sex: Female

DRUGS (2)
  1. EXTAVIA [Suspect]
     Indication: MULTIPLE SCLEROSIS
     Dosage: 250 UG
     Route: 058
     Dates: start: 20091109
  2. PANDEMRIX [Suspect]
     Indication: INFLUENZA IMMUNISATION
     Dosage: UNK
     Dates: start: 20091130, end: 20091130

REACTIONS (1)
  - PARALYSIS [None]
